FAERS Safety Report 5051815-0 (Version None)
Quarter: 2006Q3

REPORT INFORMATION
  Report Type: 
  Country: None (occurrence: None)
  Receive Date: 20060710
  Receipt Date: 20060623
  Transmission Date: 20061208
  Serious: Yes (Death, Hospitalization)
  Sender: FDA-Public Use
  Company Number: COT_0621_2006

PATIENT
  Age: 87 Year
  Sex: Male
  Weight: 68.0396 kg

DRUGS (4)
  1. VENTAVIS [Suspect]
     Indication: PULMONARY HYPERTENSION
     Dosage: 5 MCG 6XD IH
     Route: 055
     Dates: start: 20050915
  2. INSPIRA [Concomitant]
  3. FLOMAX [Concomitant]
  4. LEXAPRO [Concomitant]

REACTIONS (4)
  - CONDITION AGGRAVATED [None]
  - PROSTATE EXAMINATION ABNORMAL [None]
  - PULMONARY HYPERTENSION [None]
  - URINARY TRACT INFECTION [None]
